FAERS Safety Report 10259960 (Version 1)
Quarter: 2014Q2

REPORT INFORMATION
  Report Type: Spontaneous
  Country: US (occurrence: US)
  Receive Date: 20140625
  Receipt Date: 20140625
  Transmission Date: 20141212
  Serious: No
  Sender: FDA-Public Use
  Company Number: US-TEVA-488816USA

PATIENT
  Sex: Female

DRUGS (1)
  1. QNASL [Suspect]
     Indication: ASTHMA

REACTIONS (3)
  - Device malfunction [Unknown]
  - Upper-airway cough syndrome [Unknown]
  - Off label use [Unknown]
